FAERS Safety Report 25867671 (Version 3)
Quarter: 2025Q4

REPORT INFORMATION
  Report Type: Spontaneous
  Country: EU (occurrence: EU)
  Receive Date: 20251001
  Receipt Date: 20251015
  Transmission Date: 20260118
  Serious: Yes (Death, Other)
  Sender: CELLTRION
  Company Number: EU-CELLTRION INC.-2025IT034948

PATIENT

DRUGS (5)
  1. RITUXIMAB [Suspect]
     Active Substance: RITUXIMAB
     Indication: Mantle cell lymphoma
     Dosage: 375 MG/M2, DAY 1,EVERY 4 WEEKS FOR 6 CYCLES. {CYCLICAL
     Route: 042
  2. CYTARABINE [Suspect]
     Active Substance: CYTARABINE
     Indication: Mantle cell lymphoma
     Dosage: 500 MG/M2 DAYS 1, 2, AND 3, EVERY 4 WEEKS FOR 6 CYCLES. {CYCLICAL}
     Route: 042
  3. BENDAMUSTINE HYDROCHLORIDE [Suspect]
     Active Substance: BENDAMUSTINE HYDROCHLORIDE
     Indication: Mantle cell lymphoma
     Dosage: 70 MG/M2 DAYS 1 AND 2; EVERY 4 WEEKS FOR 6 CYCLES.{CYCLICAL}
     Route: 042
  4. VENETOCLAX [Suspect]
     Active Substance: VENETOCLAX
     Indication: Mantle cell lymphoma
     Dosage: 800 MG/DAY / 800 MG/DAY TARGET FLAT DOSE
     Route: 048
  5. VENETOCLAX [Suspect]
     Active Substance: VENETOCLAX
     Dosage: 400 MG/DAY
     Route: 048

REACTIONS (2)
  - Tumour lysis syndrome [Fatal]
  - Intentional product use issue [Unknown]
